FAERS Safety Report 5018760-8 (Version None)
Quarter: 2006Q2

REPORT INFORMATION
  Report Type: 
  Country: None (occurrence: None)
  Receive Date: 20060526
  Receipt Date: 20060518
  Transmission Date: 20061013
  Serious: Yes (Hospitalization)
  Sender: FDA-Public Use
  Company Number: 200612113BCC

PATIENT
  Age: 85 Year
  Sex: Male
  Weight: 104.3273 kg

DRUGS (4)
  1. ALEVE [Suspect]
     Indication: PAIN
     Dosage: 440 MG, TOTAL DAILY, ORAL;  440 MG, ORAL
     Route: 048
     Dates: start: 20060512
  2. ALEVE [Suspect]
     Indication: PAIN
     Dosage: 440 MG, TOTAL DAILY, ORAL;  440 MG, ORAL
     Route: 048
     Dates: start: 20060518
  3. SYNTHROID [Concomitant]
  4. ASPIRIN [Concomitant]

REACTIONS (3)
  - CONDITION AGGRAVATED [None]
  - NERVOUSNESS [None]
  - PAIN [None]
